FAERS Safety Report 6960835-8 (Version None)
Quarter: 2010Q3

REPORT INFORMATION
  Report Type: 
  Country: None (occurrence: None)
  Receive Date: 20100817
  Receipt Date: 20090917
  Transmission Date: 20110219
  Serious: No
  Sender: FDA-Public Use
  Company Number: 20097537

PATIENT
  Age: 64 Year
  Sex: Male

DRUGS (5)
  1. LIORESAL [Suspect]
     Indication: MUSCLE SPASTICITY
     Dosage: UNK MCG, DAILY, INTRATHECAL
     Route: 037
  2. FENTANYL CITRATE [Concomitant]
  3. MORPHINE [Concomitant]
  4. BUPIVICAINE [Concomitant]
  5. KETAMINE HCL [Concomitant]

REACTIONS (1)
  - PAIN [None]
